FAERS Safety Report 7791425-5 (Version None)
Quarter: 2011Q4

REPORT INFORMATION
  Report Type: 
  Country: None (occurrence: None)
  Receive Date: 20111003
  Receipt Date: 20110921
  Transmission Date: 20120403
  Serious: Yes (Hospitalization)
  Sender: FDA-Public Use
  Company Number: FR-JNJFOC-20110910165

PATIENT
  Sex: Male

DRUGS (8)
  1. ZOLPIDEM [Concomitant]
     Route: 065
  2. ZYPREXA [Suspect]
     Indication: PRODUCT USED FOR UNKNOWN INDICATION
     Route: 048
     Dates: start: 20110725, end: 20110824
  3. OXAZEPAM [Concomitant]
     Route: 065
  4. COZAAR [Concomitant]
     Route: 065
  5. RISPERDAL [Suspect]
     Indication: PRODUCT USED FOR UNKNOWN INDICATION
     Route: 048
     Dates: start: 20110805
  6. VALPROIC ACID [Suspect]
     Indication: PRODUCT USED FOR UNKNOWN INDICATION
     Route: 048
     Dates: start: 20110805, end: 20110824
  7. MICARDIS [Concomitant]
     Route: 065
  8. ATORVASTATIN CALCIUM [Concomitant]
     Route: 065

REACTIONS (4)
  - CONFUSIONAL STATE [None]
  - RENAL FAILURE ACUTE [None]
  - PNEUMONIA ASPIRATION [None]
  - PARKINSONISM [None]
